FAERS Safety Report 7969570-0 (Version None)
Quarter: 2011Q4

REPORT INFORMATION
  Report Type: 
  Country: None (occurrence: None)
  Receive Date: 20111212
  Receipt Date: 20111129
  Transmission Date: 20120403
  Serious: Yes (Hospitalization, Other)
  Sender: FDA-Public Use
  Company Number: FR-PAR PHARMACEUTICAL, INC-2011SCPR003462

PATIENT

DRUGS (10)
  1. PREDNISONE [Suspect]
     Indication: DRUG RASH WITH EOSINOPHILIA AND SYSTEMIC SYMPTOMS
     Dosage: 1 MG/KG/DAY, UNK
     Route: 048
  2. VANCOMYCIN [Suspect]
     Indication: OSTEITIS
     Dosage: UNK, UNKNOWN
     Route: 065
  3. PREDNISONE [Suspect]
     Dosage: 10 MG, / DAY
     Route: 048
  4. PREDNISONE [Suspect]
     Dosage: 2 DF, SINGLE
     Route: 040
  5. PREDNISONE [Suspect]
     Dosage: 30 MG, / DAY
     Route: 048
  6. GENTAMICIN [Suspect]
     Indication: OSTEITIS
     Dosage: UNK, UNKNOWN
     Route: 065
  7. TRAMADOL HCL [Suspect]
     Indication: OSTEITIS
     Dosage: UNK, UNKNOWN
     Route: 065
  8. CORTICOSTEROIDS [Suspect]
     Indication: DRUG RASH WITH EOSINOPHILIA AND SYSTEMIC SYMPTOMS
     Dosage: UNK UNK, UNKNOWN
     Route: 040
  9. NEFOPAM [Suspect]
     Indication: OSTEITIS
     Dosage: UNK, UNKNOWN
     Route: 065
  10. CEFTRIAXONE [Suspect]
     Indication: OSTEITIS
     Dosage: UNK, UNKNOWN
     Route: 065

REACTIONS (3)
  - DRUG RASH WITH EOSINOPHILIA AND SYSTEMIC SYMPTOMS [None]
  - HUMAN HERPES VIRUS 6 SEROLOGY POSITIVE [None]
  - BASEDOW'S DISEASE [None]
